FAERS Safety Report 25705519 (Version 1)
Quarter: 2025Q3

REPORT INFORMATION
  Report Type: Spontaneous
  Country: US (occurrence: US)
  Receive Date: 20250820
  Receipt Date: 20250820
  Transmission Date: 20251020
  Serious: Yes (Hospitalization, Other)
  Sender: AUROBINDO
  Company Number: US-MLMSERVICE-20250801-PI598708-00077-1

PATIENT
  Age: 86 Year
  Sex: Male

DRUGS (3)
  1. CAPECITABINE [Suspect]
     Active Substance: CAPECITABINE
     Indication: Adenosquamous cell carcinoma
     Route: 048
     Dates: start: 202303
  2. CAPECITABINE [Suspect]
     Active Substance: CAPECITABINE
     Indication: Skin squamous cell carcinoma metastatic
  3. CEMIPLIMAB [Concomitant]
     Active Substance: CEMIPLIMAB
     Indication: Adenosquamous cell carcinoma
     Route: 042
     Dates: start: 20230414

REACTIONS (7)
  - Neutropenia [Unknown]
  - Pyrexia [Unknown]
  - Chills [Unknown]
  - Nausea [Unknown]
  - Vomiting [Unknown]
  - Diarrhoea [Unknown]
  - Therapy non-responder [Unknown]

NARRATIVE: CASE EVENT DATE: 20230101
